FAERS Safety Report 13559432 (Version 3)
Quarter: 2017Q3

REPORT INFORMATION
  Report Type: Report from Study
  Country: None (occurrence: TR)
  Receive Date: 20170518
  Receipt Date: 20170919
  Transmission Date: 20171127
  Serious: Yes (Death, Hospitalization)
  Sender: FDA-Public Use
  Company Number: TR-ABBVIE-17K-161-1978674-00

PATIENT
  Age: 55 Year
  Sex: Male
  Weight: 78 kg

DRUGS (7)
  1. SINORETIC FORT [Concomitant]
     Indication: HYPERTENSION
     Route: 048
     Dates: start: 2014
  2. DUODOPA [Suspect]
     Active Substance: CARBIDOPA\LEVODOPA
     Route: 050
  3. IPRASAL [Concomitant]
     Indication: CHRONIC OBSTRUCTIVE PULMONARY DISEASE
     Route: 055
     Dates: start: 2014
  4. DUODOPA [Suspect]
     Active Substance: CARBIDOPA\LEVODOPA
     Indication: PARKINSON^S DISEASE
     Dosage: MORNING DOSE : 8 ML ??CONTINOUS DOSE : 3 ML??EXTRA DOSE : 1 ML
     Route: 050
     Dates: start: 20161011
  5. SERETIDE [Concomitant]
     Active Substance: FLUTICASONE PROPIONATE\SALMETEROL XINAFOATE
     Indication: CHRONIC OBSTRUCTIVE PULMONARY DISEASE
     Route: 055
     Dates: start: 2014
  6. IPRAVENT [Concomitant]
     Active Substance: IPRATROPIUM BROMIDE
     Indication: CHRONIC OBSTRUCTIVE PULMONARY DISEASE
     Dosage: 20/100 MG
     Route: 055
     Dates: start: 2014
  7. PULMICORT TURBUHALER [Concomitant]
     Active Substance: BUDESONIDE
     Indication: CHRONIC OBSTRUCTIVE PULMONARY DISEASE
     Route: 055
     Dates: start: 2014

REACTIONS (3)
  - Death [Fatal]
  - Myocardial infarction [Not Recovered/Not Resolved]
  - Brain death [Not Recovered/Not Resolved]

NARRATIVE: CASE EVENT DATE: 20170915
